FAERS Safety Report 7405455-6 (Version None)
Quarter: 2011Q2

REPORT INFORMATION
  Report Type: 
  Country: None (occurrence: None)
  Receive Date: 20110411
  Receipt Date: 20110330
  Transmission Date: 20111010
  Serious: Yes (Other)
  Sender: FDA-Public Use
  Company Number: US-AMGEN-USASP2011017223

PATIENT
  Age: 47 Year
  Sex: Female
  Weight: 63.492 kg

DRUGS (6)
  1. SOMA [Concomitant]
     Dosage: UNK UNK, QD
     Route: 048
  2. CENESTIN [Concomitant]
     Dosage: UNK UNK, QD
     Route: 048
  3. PROCRIT [Suspect]
     Dosage: 20000 IU, UNK
     Route: 058
     Dates: end: 20110329
  4. OXYCODONE [Concomitant]
     Dosage: UNK UNK, QD
     Route: 048
  5. PROCRIT [Suspect]
     Indication: ANAEMIA
     Dosage: 40000 IU, UNK
     Route: 058
     Dates: start: 20101101
  6. ZOFRAN [Concomitant]
     Dosage: UNK UNK, QD
     Route: 048

REACTIONS (2)
  - EYE DISORDER [None]
  - CONVULSION [None]
